FAERS Safety Report 7634720-2 (Version None)
Quarter: 2011Q3

REPORT INFORMATION
  Report Type: 
  Country: None (occurrence: None)
  Receive Date: 20110726
  Receipt Date: 20110718
  Transmission Date: 20111222
  Serious: Yes (Other)
  Sender: FDA-Public Use
  Company Number: US-ASTRAZENECA-2009UW18576

PATIENT
  Age: 48 Year
  Sex: Female
  Weight: 115.2 kg

DRUGS (18)
  1. SEROQUEL [Suspect]
     Indication: SLEEP DISORDER
     Route: 048
     Dates: start: 19990101, end: 20050101
  2. SEROQUEL [Suspect]
     Indication: DEPRESSION
     Route: 048
     Dates: start: 19990101, end: 20050101
  3. SEROQUEL [Suspect]
     Indication: BIPOLAR DISORDER
     Route: 048
     Dates: start: 19990101, end: 20050101
  4. ZOLOFT [Concomitant]
     Dates: start: 19990101, end: 20050101
  5. TOPROL-XL [Concomitant]
     Dates: start: 20050919
  6. TRAZODONE HYDROCHLORIDE [Concomitant]
     Dates: start: 20050919
  7. RISPERDAL [Concomitant]
     Dates: start: 19990101, end: 20000101
  8. LIPITOR [Concomitant]
     Route: 048
     Dates: start: 20050919
  9. NITROGLYCERIN [Concomitant]
     Dosage: 0.4 MG 1 TAB S/L PRN
     Dates: start: 20050919
  10. ASPIRIN [Concomitant]
     Route: 048
     Dates: start: 20050919
  11. SOMA [Concomitant]
     Route: 048
     Dates: start: 20050919
  12. ESTRATEST H.S. [Concomitant]
     Dosage: 0.625 MG TO 1.25 MG 1 PO QD
     Dates: start: 20050919
  13. SEROQUEL [Suspect]
     Route: 048
     Dates: start: 20050919
  14. SEROQUEL [Suspect]
     Route: 048
     Dates: start: 20050919
  15. SEROQUEL [Suspect]
     Route: 048
     Dates: start: 20050919
  16. PROTONIX [Concomitant]
     Route: 048
     Dates: start: 20050919
  17. TRICOR [Concomitant]
     Route: 048
     Dates: start: 20050919
  18. ALBUTEROL [Concomitant]
     Dosage: 90 MCG/INH 2 PUFFS QID
     Dates: start: 20050919

REACTIONS (4)
  - MUSCULOSKELETAL DISCOMFORT [None]
  - CARDIAC DISORDER [None]
  - RENAL DISORDER [None]
  - TYPE 2 DIABETES MELLITUS [None]
